FAERS Safety Report 9582956 (Version 1)
Quarter: 2013Q4

REPORT INFORMATION
  Report Type: Spontaneous
  Country: US (occurrence: US)
  Receive Date: 20131002
  Receipt Date: 20131002
  Transmission Date: 20140711
  Serious: No
  Sender: FDA-Public Use
  Company Number: US-AMGEN-USASP2013044346

PATIENT
  Age: 47 Year
  Sex: Female
  Weight: 49.43 kg

DRUGS (4)
  1. ENBREL [Suspect]
     Indication: PRODUCT USED FOR UNKNOWN INDICATION
     Dosage: 50 MG, QWK
     Route: 058
  2. MULTIVITAMINS, PLAIN [Concomitant]
     Dosage: UNK
  3. VITAMIN D                          /00107901/ [Concomitant]
     Dosage: 50000 UNIT, UNK
  4. FISH OIL [Concomitant]
     Dosage: UNK

REACTIONS (2)
  - Skin discolouration [Unknown]
  - Contusion [Unknown]
